FAERS Safety Report 9017410 (Version 3)
Quarter: 2015Q1

REPORT INFORMATION
  Report Type: Spontaneous
  Country: US (occurrence: US)
  Receive Date: 20130117
  Receipt Date: 20150122
  Transmission Date: 20150721
  Serious: Yes (Hospitalization, Other)
  Sender: FDA-Public Use
  Company Number: US-009507513-1301USA007495

PATIENT
  Sex: Female
  Weight: 77.98 kg

DRUGS (14)
  1. VITAMINS (UNSPECIFIED) [Concomitant]
     Active Substance: VITAMINS
     Dosage: 1 DF, QD
     Dates: start: 1993
  2. VITAMIN B COMPLEX [Concomitant]
     Active Substance: CYANOCOBALAMIN\DEXPANTHENOL\NIACINAMIDE\PYRIDOXINE HYDROCHLORIDE\RIBOFLAVIN 5^-PHOSPHATE SODIUM\THIAMINE HYDROCHLORIDE\VITAMIN B COMPLEX
     Dosage: 1 DF, QD
     Dates: start: 1993
  3. CALCIUM (UNSPECIFIED) [Concomitant]
     Active Substance: CALCIUM
     Dosage: 600 MG, QD
     Dates: start: 1993
  4. ALENDRONATE SODIUM. [Suspect]
     Active Substance: ALENDRONATE SODIUM
     Indication: OSTEOPENIA
     Dosage: 70 MG, UNK
     Route: 048
     Dates: start: 200802, end: 201007
  5. GLUCOSAMINE SULFATE [Concomitant]
     Active Substance: GLUCOSAMINE SULFATE
     Dosage: UNK, QD
     Dates: start: 1993
  6. TEA [Concomitant]
     Active Substance: TEA LEAF
     Dosage: 1 DF, QD
     Dates: start: 1993
  7. FOSAMAX [Suspect]
     Active Substance: ALENDRONATE SODIUM
     Indication: OSTEOPOROSIS
  8. VITAMIN E [Concomitant]
     Active Substance: .ALPHA.-TOCOPHEROL
     Dosage: 400 IU, QD
     Dates: start: 1993
  9. GELATIN [Concomitant]
     Active Substance: GELATIN
     Dosage: 10 G, QD
     Dates: start: 1993
  10. ASCORBIC ACID. [Concomitant]
     Active Substance: ASCORBIC ACID
     Dosage: 100 MG, QD
     Dates: start: 1993
  11. FOSAMAX [Suspect]
     Active Substance: ALENDRONATE SODIUM
     Indication: OSTEOPENIA
     Dosage: 70 MG, QW
     Route: 048
     Dates: start: 2003, end: 20110817
  12. POTASSIUM GLUCONATE [Concomitant]
     Active Substance: POTASSIUM GLUCONATE
     Dosage: 595 MG, QD
     Dates: start: 1993
  13. UBIDECARENONE [Concomitant]
     Active Substance: UBIDECARENONE
     Dosage: 100 MG, QD
     Dates: start: 1993
  14. PROBIOTICS (UNSPECIFIED) [Concomitant]
     Active Substance: PROBIOTICS NOS
     Dosage: 1 DF, QD
     Dates: start: 1993

REACTIONS (42)
  - Bone graft [Unknown]
  - Gastrointestinal ulcer haemorrhage [Unknown]
  - Bladder repair [Unknown]
  - Vomiting [Unknown]
  - Vaginoplasty [Unknown]
  - Rheumatoid arthritis [Unknown]
  - Internal fixation of fracture [Unknown]
  - Cystocele [Unknown]
  - Femur fracture [Unknown]
  - Bone graft [Unknown]
  - Medical device removal [Unknown]
  - Low turnover osteopathy [Unknown]
  - Nodule [Unknown]
  - Appendicectomy [Unknown]
  - Nausea [Unknown]
  - Impaired healing [Unknown]
  - Surgery [Unknown]
  - Sexual dysfunction [Unknown]
  - Ear infection [Not Recovered/Not Resolved]
  - Injury corneal [Unknown]
  - Gastrooesophageal reflux disease [Unknown]
  - Gastritis [Unknown]
  - Femur fracture [Unknown]
  - Colon operation [Unknown]
  - Open reduction of fracture [Unknown]
  - Medical device removal [Unknown]
  - Internal fixation of fracture [Unknown]
  - Adverse event [Unknown]
  - Diverticulum [Unknown]
  - Fracture nonunion [Unknown]
  - Hip arthroplasty [Unknown]
  - Adverse event [Unknown]
  - Haemorrhagic anaemia [Unknown]
  - Hypoglycaemia [Unknown]
  - Psoriasis [Unknown]
  - Intramedullary rod insertion [Unknown]
  - Medical device removal [Unknown]
  - Vitamin D deficiency [Unknown]
  - Haematocrit decreased [Recovering/Resolving]
  - Back pain [Not Recovered/Not Resolved]
  - Hysterectomy [Unknown]
  - Joint surgery [Unknown]

NARRATIVE: CASE EVENT DATE: 20060122
